FAERS Safety Report 8172264-2 (Version None)
Quarter: 2012Q1

REPORT INFORMATION
  Report Type: 
  Country: None (occurrence: None)
  Receive Date: 20120229
  Receipt Date: 20120221
  Transmission Date: 20120608
  Serious: Yes (Other)
  Sender: FDA-Public Use
  Company Number: US-BIOGENIDEC-2012BI004290

PATIENT
  Age: 62 Year
  Sex: Female

DRUGS (2)
  1. AVONEX [Suspect]
     Indication: MULTIPLE SCLEROSIS
     Route: 030
     Dates: start: 20020401, end: 20030101
  2. AVONEX [Suspect]
     Route: 030
     Dates: start: 20030502

REACTIONS (11)
  - COLITIS MICROSCOPIC [None]
  - HYPOAESTHESIA [None]
  - GAIT DISTURBANCE [None]
  - BALANCE DISORDER [None]
  - LICHEN PLANUS [None]
  - FATIGUE [None]
  - ARTHRITIS [None]
  - PAIN IN EXTREMITY [None]
  - SALIVARY DUCT OBSTRUCTION [None]
  - NUCLEAR MAGNETIC RESONANCE IMAGING ABNORMAL [None]
  - PERONEAL NERVE PALSY [None]
